FAERS Safety Report 5682059-7 (Version None)
Quarter: 2008Q1

REPORT INFORMATION
  Report Type: 
  Country: None (occurrence: None)
  Receive Date: 20080327
  Receipt Date: 20070409
  Transmission Date: 20080703
  Serious: No
  Sender: FDA-Public Use
  Company Number: US-BAYER-US-2007-012769

PATIENT
  Age: 25 Year
  Sex: Female
  Weight: 93 kg

DRUGS (2)
  1. MIRENA [Suspect]
     Indication: CONTRACEPTION
     Route: 015
     Dates: start: 20040901
  2. PROZAC [Concomitant]

REACTIONS (4)
  - AMNESIA [None]
  - GENITAL DISCOMFORT [None]
  - PRURITUS GENITAL [None]
  - VAGINAL INFECTION [None]
